APPROVED DRUG PRODUCT: LOVENOX
Active Ingredient: ENOXAPARIN SODIUM
Strength: 300MG/3ML (100MG/ML)
Dosage Form/Route: INJECTABLE;INTRAVENOUS, SUBCUTANEOUS
Application: N020164 | Product #009 | TE Code: AB
Applicant: SANOFI AVENTIS US LLC
Approved: Jan 23, 2003 | RLD: Yes | RS: No | Type: RX